FAERS Safety Report 4716547-4 (Version None)
Quarter: 2005Q3

REPORT INFORMATION
  Report Type: 
  Country: None (occurrence: None)
  Receive Date: 20050714
  Receipt Date: 20050523
  Transmission Date: 20060218
  Serious: Yes (Other)
  Sender: FDA-Public Use
  Company Number: 2005BH000604

PATIENT
  Age: 50 Year
  Sex: Female

DRUGS (8)
  1. LACTATED RINGER'S [Suspect]
     Dosage: 500 ML ; IV
     Route: 042
     Dates: start: 20050430
  2. LACTATED RINGERS INJECTION IN PLATIC CONTAINER (LACTATED RINGERS) [Suspect]
  3. LACTATED RINGERS INJECTION IN PLATIC CONTAINER (LACTATED RINGERS) [Suspect]
  4. TRAMADOL HCL [Concomitant]
  5. ENOXAPARIN SODIUM [Concomitant]
  6. CIPROFLOXACIN [Concomitant]
  7. HYOSCINE -N-BUTYL [Concomitant]
  8. BROMIDE [Concomitant]

REACTIONS (2)
  - HYPERSENSITIVITY [None]
  - INFUSION RELATED REACTION [None]
